FAERS Safety Report 7725705-6 (Version None)
Quarter: 2011Q3

REPORT INFORMATION
  Report Type: 
  Country: None (occurrence: None)
  Receive Date: 20110902
  Receipt Date: 20110819
  Transmission Date: 20111222
  Serious: Yes (Hospitalization, Other)
  Sender: FDA-Public Use
  Company Number: GB-UCBSA-038548

PATIENT
  Sex: Female
  Weight: 57 kg

DRUGS (6)
  1. TRILEPTAL [Concomitant]
  2. BISOPROLOL FUMARATE [Concomitant]
     Route: 048
     Dates: start: 20110401
  3. VIMPAT [Suspect]
     Indication: EPILEPSY
  4. VIMPAT [Suspect]
     Dosage: REDUCING DOSE ; LIQUID FORM
     Route: 048
     Dates: start: 20091001
  5. KEPPRA [Concomitant]
     Indication: EPILEPSY
     Route: 048
     Dates: start: 20050101
  6. AMLODIPINE [Concomitant]
     Route: 048
     Dates: start: 20110401

REACTIONS (6)
  - ANXIETY [None]
  - POOR QUALITY DRUG ADMINISTERED [None]
  - HEART RATE INCREASED [None]
  - PETIT MAL EPILEPSY [None]
  - SLEEP DISORDER [None]
  - NIGHTMARE [None]
